FAERS Safety Report 8828312 (Version 2)
Quarter: 2012Q4

REPORT INFORMATION
  Report Type: 
  Country: US (occurrence: US)
  Receive Date: 20121005
  Receipt Date: 20121026
  Transmission Date: 20130627
  Serious: No
  Sender: FDA-Public Use
  Company Number: US-PFIZER INC-2012245248

PATIENT
  Age: 43 Year
  Sex: Male

DRUGS (6)
  1. PROTONIX [Suspect]
     Dosage: 40 mg, 1x/day (1 daily)
  2. GLUCOTROL [Suspect]
     Dosage: 10 mg, 1x/day (1 daily)
  3. PREDNISONE [Suspect]
     Dosage: UNK
  4. ALBUTEROL [Suspect]
     Dosage: UNK
  5. ACETYLSALICYLIC ACID [Suspect]
     Dosage: UNK
  6. LOTENSIN [Suspect]
     Dosage: UNK

REACTIONS (1)
  - Drug hypersensitivity [Unknown]
